FAERS Safety Report 9075138 (Version 1)
Quarter: 2013Q1

REPORT INFORMATION
  Report Type: Report from Study
  Country: US (occurrence: US)
  Receive Date: 20130131
  Receipt Date: 20130131
  Transmission Date: 20140127
  Serious: Yes (Other)
  Sender: FDA-Public Use
  Company Number: US-ABBOTT-12P-163-1006413-00

PATIENT
  Age: 40 Year
  Sex: Female
  Weight: 99.88 kg

DRUGS (6)
  1. HUMIRA [Suspect]
     Indication: CROHN^S DISEASE
     Dates: start: 20120920, end: 20120920
  2. HUMIRA [Suspect]
     Dates: start: 20121004, end: 20121004
  3. HUMIRA [Suspect]
     Dates: start: 20121018
  4. PREDNISONE [Concomitant]
     Indication: CROHN^S DISEASE
  5. TINTURE OF OPIUM [Concomitant]
     Indication: CROHN^S DISEASE
  6. UNKNOWN MEDICATIONS [Concomitant]
     Indication: PRODUCT USED FOR UNKNOWN INDICATION

REACTIONS (3)
  - Visual acuity reduced [Not Recovered/Not Resolved]
  - Vision blurred [Not Recovered/Not Resolved]
  - Visual impairment [Not Recovered/Not Resolved]
